FAERS Safety Report 5843324-3 (Version None)
Quarter: 2008Q3

REPORT INFORMATION
  Report Type: 
  Country: None (occurrence: None)
  Receive Date: 20080812
  Receipt Date: 20080812
  Transmission Date: 20090109
  Serious: No
  Sender: FDA-Public Use
  Company Number: None

PATIENT
  Age: 37 Year
  Sex: Male
  Weight: 74.8435 kg

DRUGS (1)
  1. PROPECIA [Suspect]
     Indication: ALOPECIA
     Dosage: 1 MG DAILY PO
     Route: 048
     Dates: start: 20040419, end: 20040425

REACTIONS (4)
  - ASTHENIA [None]
  - ERECTILE DYSFUNCTION [None]
  - LIBIDO DISORDER [None]
  - SEXUAL DYSFUNCTION [None]
